FAERS Safety Report 5139917-1 (Version None)
Quarter: 2006Q4

REPORT INFORMATION
  Report Type: 
  Country: None (occurrence: None)
  Receive Date: 20061031
  Receipt Date: 20060824
  Transmission Date: 20070319
  Serious: Yes (Death, Hospitalization, Other)
  Sender: FDA-Public Use
  Company Number: US-ELI_LILLY_AND_COMPANY-US200608005356

PATIENT
  Age: 59 Year
  Sex: Female
  Weight: 81.632 kg

DRUGS (5)
  1. ZYPREXA [Suspect]
     Dosage: 10 MG, UNK
     Dates: start: 19970101
  2. ZYPREXA [Suspect]
     Dosage: 15 MG, UNK
     Dates: end: 20020101
  3. PROZAC [Concomitant]
     Dates: start: 19960101, end: 19970101
  4. EFFEXOR [Concomitant]
     Dates: start: 19970101, end: 20000101
  5. SEROQUEL [Concomitant]
     Dates: start: 19990101, end: 20010101

REACTIONS (5)
  - BLOOD PRESSURE [None]
  - BLOOD SODIUM DECREASED [None]
  - DEATH [None]
  - NEUROLEPTIC MALIGNANT SYNDROME [None]
  - PNEUMONIA [None]
